FAERS Safety Report 4685558-X (Version None)
Quarter: 2005Q2

REPORT INFORMATION
  Report Type: 
  Country: None (occurrence: None)
  Receive Date: 20050602
  Receipt Date: 20050519
  Transmission Date: 20051028
  Serious: Yes (Life-Threatening, Other)
  Sender: FDA-Public Use
  Company Number: THYM-10552

PATIENT
  Age: 60 Year
  Sex: Male
  Weight: 85.2 kg

DRUGS (5)
  1. THYMOGLOBULIN [Suspect]
     Indication: PROPHYLAXIS AGAINST TRANSPLANT REJECTION
     Dosage: 05. MG/KG QD IV
     Route: 042
     Dates: start: 20041109, end: 20041109
  2. THYMOGLOBULIN [Suspect]
     Indication: PROPHYLAXIS AGAINST TRANSPLANT REJECTION
     Dosage: 2.5 MG/KG QD IV
     Route: 042
     Dates: start: 20041110, end: 20041110
  3. THYMOGLOBULIN [Suspect]
     Indication: PROPHYLAXIS AGAINST TRANSPLANT REJECTION
     Dosage: 3 MG/KG QD IV
     Route: 042
     Dates: start: 20041111, end: 20041111
  4. FLUDARABINE PHOSPHATE [Concomitant]
  5. BUSULFAN [Concomitant]

REACTIONS (4)
  - BLOOD STEM CELL TRANSPLANT FAILURE [None]
  - MYELODYSPLASTIC SYNDROME [None]
  - PNEUMONIA [None]
  - REFRACTORY ANAEMIA [None]
